FAERS Safety Report 16901981 (Version 13)
Quarter: 2021Q2

REPORT INFORMATION
  Report Type: Report from Study
  Country: None (occurrence: NL)
  Receive Date: 20191010
  Receipt Date: 20210513
  Transmission Date: 20210716
  Serious: Yes (Hospitalization)
  Sender: FDA-Public Use
  Company Number: NL-ABBVIE-18S-114-2543996-00

PATIENT
  Age: 83 Year
  Sex: Female
  Weight: 68 kg

DRUGS (16)
  1. DUODOPA [Suspect]
     Active Substance: CARBIDOPA\LEVODOPA
     Dosage: MD: 8.5 ML; CD: 1.9 ML; ED: 2.0 ML
     Route: 050
  2. SINEMET CR [Concomitant]
     Active Substance: CARBIDOPA\LEVODOPA
     Indication: PARKINSON^S DISEASE
  3. SINEMET CR [Concomitant]
     Active Substance: CARBIDOPA\LEVODOPA
     Dates: end: 2019
  4. PREDNISONE. [Concomitant]
     Active Substance: PREDNISONE
     Indication: PRODUCT USED FOR UNKNOWN INDICATION
     Dates: end: 20190930
  5. DUODOPA [Suspect]
     Active Substance: CARBIDOPA\LEVODOPA
     Dosage: MD: 8.5 ML; CD: 2.0 ML/H; ED: 2.0 ML;
     Route: 050
  6. LEVODOPA/CARBIDOPA [Concomitant]
     Active Substance: CARBIDOPA\LEVODOPA
     Route: 065
  7. DUODOPA [Suspect]
     Active Substance: CARBIDOPA\LEVODOPA
     Indication: PARKINSON^S DISEASE
     Dosage: MD 8.5 CD 1.8 ED 2.0  FROM 7AM TO 9PM?REMAINS AT 16 HOURS
     Route: 050
     Dates: start: 20160704
  8. LEVODOPA/CARBIDOPA CR [Concomitant]
     Indication: PRODUCT USED FOR UNKNOWN INDICATION
     Dosage: LEVODOPA/CARBIDOPA CR AT NIGHT
  9. DUODOPA [Suspect]
     Active Substance: CARBIDOPA\LEVODOPA
     Dosage: MD 8.5 CD 2.0 ED 2.0
     Route: 050
  10. NEUPRO [Concomitant]
     Active Substance: ROTIGOTINE
     Indication: PARKINSON^S DISEASE
  11. MAGNESIUM [Concomitant]
     Active Substance: MAGNESIUM
     Indication: MUSCLE SPASMS
  12. MAGNESIUM [Concomitant]
     Active Substance: MAGNESIUM
     Route: 065
  13. DUODOPA [Suspect]
     Active Substance: CARBIDOPA\LEVODOPA
     Dosage: CD: 1.7
     Route: 050
  14. DUODOPA [Suspect]
     Active Substance: CARBIDOPA\LEVODOPA
     Dosage: CONTINUOUS DOSE WAS RECENTLY INCREASED BY 0.1 ML/H
     Route: 050
  15. LEVODOPA/CARBIDOPA [Concomitant]
     Active Substance: CARBIDOPA\LEVODOPA
     Indication: PARKINSON^S DISEASE
     Route: 065
  16. MADOPAR DISPERSIBL [Concomitant]
     Active Substance: BENSERAZIDE HYDROCHLORIDE\LEVODOPA
     Indication: PARKINSON^S DISEASE
     Dosage: ONCE DAILY IF NECESSARY

REACTIONS (42)
  - Arthritis [Not Recovered/Not Resolved]
  - Device issue [Unknown]
  - Muscle spasms [Not Recovered/Not Resolved]
  - Bradykinesia [Not Recovered/Not Resolved]
  - Terminal insomnia [Not Recovered/Not Resolved]
  - Stoma site discharge [Not Recovered/Not Resolved]
  - Fatigue [Not Recovered/Not Resolved]
  - Therapeutic product effect incomplete [Not Recovered/Not Resolved]
  - Initial insomnia [Not Recovered/Not Resolved]
  - Dyskinesia [Recovered/Resolved]
  - Hypokinesia [Not Recovered/Not Resolved]
  - Movement disorder [Recovered/Resolved]
  - Pain in extremity [Not Recovered/Not Resolved]
  - Respiratory tract infection [Recovered/Resolved]
  - Vitamin B complex deficiency [Not Recovered/Not Resolved]
  - Chorea [Not Recovered/Not Resolved]
  - Weight increased [Recovered/Resolved]
  - Stoma site discharge [Recovered/Resolved]
  - Dyskinesia [Not Recovered/Not Resolved]
  - Medical device discomfort [Unknown]
  - Stress [Not Recovered/Not Resolved]
  - Muscle rigidity [Not Recovered/Not Resolved]
  - Urinary tract infection [Recovered/Resolved]
  - Mobility decreased [Not Recovered/Not Resolved]
  - Thyroid disorder [Recovered/Resolved]
  - Dizziness [Not Recovered/Not Resolved]
  - Freezing phenomenon [Not Recovered/Not Resolved]
  - Anxiety [Unknown]
  - Incorrect dose administered [Recovered/Resolved]
  - Tension [Not Recovered/Not Resolved]
  - Memory impairment [Recovered/Resolved]
  - Stoma site erythema [Not Recovered/Not Resolved]
  - Parkinson^s disease [Not Recovered/Not Resolved]
  - Hypothyroidism [Not Recovered/Not Resolved]
  - Infection [Recovered/Resolved]
  - Fine motor skill dysfunction [Not Recovered/Not Resolved]
  - Gait disturbance [Not Recovered/Not Resolved]
  - Stoma site erythema [Recovered/Resolved]
  - On and off phenomenon [Recovered/Resolved]
  - Sleep disorder [Unknown]
  - Incontinence [Not Recovered/Not Resolved]
  - Diarrhoea [Recovered/Resolved]

NARRATIVE: CASE EVENT DATE: 2019
